FAERS Safety Report 12953246 (Version 1)
Quarter: 2016Q4

REPORT INFORMATION
  Report Type: Spontaneous
  Country: US (occurrence: US)
  Receive Date: 20161117
  Receipt Date: 20161117
  Transmission Date: 20170207
  Serious: Yes (Other)
  Sender: FDA-Public Use
  Company Number: US-MYLANLABS-2016M1048664

PATIENT

DRUGS (1)
  1. ALENDRONATE SODIUM TABLETS, USP [Suspect]
     Active Substance: ALENDRONATE SODIUM
     Indication: BLADDER IRRITATION
     Dosage: 70 MG
     Route: 048
     Dates: start: 2014

REACTIONS (3)
  - Fall [Recovered/Resolved]
  - Drug ineffective for unapproved indication [Not Recovered/Not Resolved]
  - Wrist fracture [Unknown]

NARRATIVE: CASE EVENT DATE: 20161101
